FAERS Safety Report 8965552 (Version 1)
Quarter: 2012Q4

REPORT INFORMATION
  Report Type: Spontaneous
  Country: US (occurrence: None)
  Receive Date: 20121212
  Receipt Date: 20121212
  Transmission Date: 20130627
  Serious: Yes (Other)
  Sender: FDA-Public Use
  Company Number: None

PATIENT
  Age: 62 Year
  Sex: Female
  Weight: 83.92 kg

DRUGS (1)
  1. CYMBALTA [Suspect]
     Indication: FIBROMYALGIA
     Dosage: one daily po
     Route: 048
     Dates: start: 20110201, end: 20121126

REACTIONS (16)
  - Fatigue [None]
  - Skin discolouration [None]
  - Skin exfoliation [None]
  - Musculoskeletal stiffness [None]
  - Dyspnoea [None]
  - Dizziness [None]
  - Nausea [None]
  - Diarrhoea [None]
  - Abdominal pain upper [None]
  - Middle insomnia [None]
  - Irritability [None]
  - Paraesthesia [None]
  - Vision blurred [None]
  - Ocular hyperaemia [None]
  - Visual impairment [None]
  - Faeces discoloured [None]
